FAERS Safety Report 5238490-7 (Version None)
Quarter: 2007Q1

REPORT INFORMATION
  Report Type: 
  Country: None (occurrence: None)
  Receive Date: 20070215
  Receipt Date: 20070208
  Transmission Date: 20070707
  Serious: Yes (Death, Hospitalization, Other)
  Sender: FDA-Public Use
  Company Number: CH-ELI_LILLY_AND_COMPANY-CH200606001892

PATIENT
  Age: 53 Year
  Sex: Female

DRUGS (18)
  1. ZYPREXA [Suspect]
     Indication: SCHIZOPHRENIA, PARANOID TYPE
     Dosage: 30 MG, DAILY (1/D)
     Route: 048
     Dates: start: 20060120, end: 20060124
  2. ZYPREXA [Suspect]
     Dosage: 40 MG, DAILY (1/D)
     Route: 048
     Dates: start: 20060125, end: 20060126
  3. ZYPREXA [Suspect]
     Dosage: 30 MG, DAILY (1/D)
     Route: 048
     Dates: start: 20060127, end: 20060128
  4. ZYPREXA [Suspect]
     Dosage: 22.5 MG, DAILY (1/D)
     Route: 048
     Dates: start: 20060129, end: 20060206
  5. ZYPREXA [Suspect]
     Dosage: 10 MG, DAILY (1/D)
     Route: 048
     Dates: start: 20060207, end: 20060209
  6. ZYPREXA [Suspect]
     Dosage: 12.5 MG, DAILY (1/D)
     Route: 048
     Dates: start: 20060210, end: 20060212
  7. ZYPREXA [Suspect]
     Dosage: 10 MG, DAILY (1/D)
     Route: 048
     Dates: start: 20060213, end: 20060227
  8. ZYPREXA [Suspect]
     Dosage: 7.5 MG, DAILY (1/D)
     Route: 048
     Dates: start: 20060228, end: 20060304
  9. CAPTOPRIL ^MEPHA^ [Concomitant]
     Indication: HYPERTENSION
     Dosage: 37.5 MG, DAILY (1/D)
     Route: 048
     Dates: start: 20060302
  10. FLUANXOL ^BAYER^ [Concomitant]
     Indication: PSYCHOTIC DISORDER
     Dosage: 2-10MG, DAILY (1/D)
     Route: 048
     Dates: start: 20060216, end: 20060227
  11. FLUANXOL ^BAYER^ [Concomitant]
     Dosage: 15 MG, DAILY (1/D)
     Route: 048
     Dates: start: 20060228, end: 20060304
  12. MST CONTINUS ^NAPP^ [Concomitant]
     Dosage: 20 MG, DAILY (1/D)
     Route: 048
     Dates: start: 20060215, end: 20060218
  13. MST CONTINUS ^NAPP^ [Concomitant]
     Dosage: 15 MG, DAILY (1/D)
     Route: 048
     Dates: start: 20060219, end: 20060225
  14. MST CONTINUS ^NAPP^ [Concomitant]
     Dosage: 10 MG, DAILY (1/D)
     Route: 048
     Dates: start: 20060226, end: 20060227
  15. MST CONTINUS ^NAPP^ [Concomitant]
     Dosage: 5 MG, DAILY (1/D)
     Route: 048
     Dates: start: 20060228, end: 20060304
  16. SIRDALUD /DEN/ [Concomitant]
     Dosage: 6 MG, DAILY (1/D)
     Route: 048
     Dates: start: 20060215
  17. ZOLPIDEM TARTRATE [Concomitant]
     Indication: SLEEP DISORDER
     Dosage: 10 MG, DAILY (1/D)
     Route: 048
     Dates: start: 20060215, end: 20060227
  18. ZOLPIDEM TARTRATE [Concomitant]
     Dosage: 5 MG, DAILY (1/D)
     Route: 048
     Dates: start: 20060228, end: 20060304

REACTIONS (5)
  - CHOKING [None]
  - DYSPNOEA [None]
  - LOSS OF CONSCIOUSNESS [None]
  - PRESCRIBED OVERDOSE [None]
  - STRIDOR [None]
